FAERS Safety Report 6610370-1 (Version None)
Quarter: 2010Q1

REPORT INFORMATION
  Report Type: 
  Country: None (occurrence: None)
  Receive Date: 20100302
  Receipt Date: 20100225
  Transmission Date: 20100710
  Serious: Yes (Disabling, Other)
  Sender: FDA-Public Use
  Company Number: GB-NAPPMUNDI-GBR-2010-0006126

PATIENT
  Sex: Male

DRUGS (10)
  1. MS CONTIN [Suspect]
     Indication: FIBROMYALGIA
     Dosage: 60 MG, BID
     Route: 048
     Dates: start: 20010214
  2. MS CONTIN [Suspect]
     Indication: ARTHRALGIA
     Dosage: 60 UNK, DAILY
     Route: 048
     Dates: start: 20001201
  3. NAPROXEN [Concomitant]
     Indication: ARTHRALGIA
     Dosage: 500 MG, DAILY
     Route: 048
     Dates: start: 19991221
  4. ATENOLOL [Concomitant]
     Indication: HYPERTENSION
     Dosage: 50 MG, DAILY
     Dates: start: 20010214
  5. SERTRALINE HCL [Concomitant]
     Indication: HYPERTENSION
     Dosage: 150 MG, DAILY
     Dates: start: 20010214
  6. MOXONIDINE [Concomitant]
     Indication: ANGINA PECTORIS
     Dosage: 600 MG, DAILY
     Route: 048
     Dates: start: 20010214
  7. SIMVASTATIN [Concomitant]
     Indication: HYPERCHOLESTEROLAEMIA
     Dosage: 20 MG, DAILY
     Route: 048
     Dates: start: 20010214
  8. ASPIRIN [Concomitant]
     Indication: ANTICOAGULANT THERAPY
     Dosage: 75 MG, DAILY
     Route: 048
     Dates: start: 20010214
  9. NITROGLYCERIN [Concomitant]
     Indication: DRUG USE FOR UNKNOWN INDICATION
     Route: 065
  10. TRAMADOL HCL [Concomitant]
     Indication: PAIN
     Dosage: 50 MG, BID
     Route: 065

REACTIONS (8)
  - DRUG DEPENDENCE [None]
  - DRY MOUTH [None]
  - FALL [None]
  - FEELING DRUNK [None]
  - HYPOAESTHESIA [None]
  - HYPOAESTHESIA FACIAL [None]
  - INADEQUATE ANALGESIA [None]
  - ULCER [None]
